FAERS Safety Report 5145857-4 (Version None)
Quarter: 2006Q4

REPORT INFORMATION
  Report Type: 
  Country: None (occurrence: None)
  Receive Date: 20061108
  Receipt Date: 20060525
  Transmission Date: 20070319
  Serious: Yes (Hospitalization)
  Sender: FDA-Public Use
  Company Number: US-BAYER-200613634BWH

PATIENT
  Age: 75 Year
  Sex: Male
  Weight: 66 kg

DRUGS (17)
  1. NEXAVAR [Suspect]
     Indication: RENAL CELL CARCINOMA STAGE UNSPECIFIED
     Dosage: TOTAL DAILY DOSE: 800 MG  UNIT DOSE: 200 MG
     Route: 048
     Dates: start: 20060213
  2. ENALAPRIL MALEATE [Concomitant]
  3. LOVASTATIN [Concomitant]
  4. ASPIRIN [Concomitant]
     Indication: HYPERTENSION
     Dosage: TOTAL DAILY DOSE: 325 MG  UNIT DOSE: 325 MG
     Route: 048
  5. HYDROCHLOROTHIAZIDE [Concomitant]
     Indication: HYPERTENSION
     Dosage: TOTAL DAILY DOSE: 12.5 MG  UNIT DOSE: 25 MG
     Route: 048
  6. ZOLOFT [Concomitant]
     Indication: DEPRESSION
     Dosage: TOTAL DAILY DOSE: 50 MG  UNIT DOSE: 50 MG
     Dates: start: 20060401
  7. LORAZEPAM [Concomitant]
  8. TRAZODONE HCL [Concomitant]
     Indication: SLEEP DISORDER
     Dosage: TOTAL DAILY DOSE: 100 MG  UNIT DOSE: 100 MG
     Route: 048
     Dates: start: 20030101
  9. MULTI-VITAMIN [Concomitant]
  10. ZOMETA [Concomitant]
     Indication: BONE LESION
     Route: 042
     Dates: start: 20051201
  11. CITRACAL [Concomitant]
     Route: 048
  12. KLOR-CON [Concomitant]
     Indication: HYPOKALAEMIA
     Dosage: TOTAL DAILY DOSE: 10 MEQ  UNIT DOSE: 10 MEQ
     Dates: start: 20060401
  13. ALTACE [Concomitant]
     Indication: HYPERTENSION
     Dosage: TOTAL DAILY DOSE: 40 MG  UNIT DOSE: 40 MG
     Dates: start: 20060401
  14. ZOCOR [Concomitant]
     Indication: BLOOD CHOLESTEROL INCREASED
     Dosage: TOTAL DAILY DOSE: 20 MG  UNIT DOSE: 40 MG
     Dates: start: 20060401
  15. REMERON [Concomitant]
     Indication: DECREASED APPETITE
     Dosage: TOTAL DAILY DOSE: 15 MG  UNIT DOSE: 15 MG
     Dates: start: 20061001
  16. IMODIUM [Concomitant]
     Indication: DIARRHOEA
     Dates: start: 20060701
  17. APAP W/ CODEINE [Concomitant]
     Indication: DIARRHOEA
     Dates: start: 20061016

REACTIONS (10)
  - ALOPECIA [None]
  - BLOOD POTASSIUM DECREASED [None]
  - BLOOD SODIUM DECREASED [None]
  - CHEST DISCOMFORT [None]
  - DIARRHOEA [None]
  - GASTROOESOPHAGEAL REFLUX DISEASE [None]
  - MALAISE [None]
  - PRURITUS GENERALISED [None]
  - SINUS HEADACHE [None]
  - VOMITING [None]
